FAERS Safety Report 8733494 (Version 2)
Quarter: 2013Q1

REPORT INFORMATION
  Report Type: Spontaneous
  Country: US (occurrence: US)
  Receive Date: 20120821
  Receipt Date: 20130222
  Transmission Date: 20140127
  Serious: Yes (Hospitalization)
  Sender: FDA-Public Use
  Company Number: US-BAYER-2012-082784

PATIENT
  Age: 29 Year
  Sex: Female
  Weight: 56.69 kg

DRUGS (3)
  1. YAZ [Suspect]
     Dosage: UNK
     Dates: start: 2008
  2. DEPO PROVERA [Concomitant]
  3. STREPTOKINASE [Concomitant]

REACTIONS (9)
  - Deep vein thrombosis [None]
  - Injury [None]
  - Pain [None]
  - Anxiety [None]
  - Anhedonia [None]
  - Pelvic venous thrombosis [None]
  - Vena cava thrombosis [Recovered/Resolved]
  - Deep vein thrombosis [Recovering/Resolving]
  - Thrombophlebitis superficial [None]
